FAERS Safety Report 8329981-0 (Version None)
Quarter: 2012Q2

REPORT INFORMATION
  Report Type: 
  Country: None (occurrence: None)
  Receive Date: 20120502
  Receipt Date: 20120425
  Transmission Date: 20120825
  Serious: Yes (Hospitalization)
  Sender: FDA-Public Use
  Company Number: SE-ABBOTT-12P-150-0929499-00

PATIENT
  Sex: Male

DRUGS (3)
  1. DIAZEPAM [Concomitant]
     Indication: PRODUCT USED FOR UNKNOWN INDICATION
  2. LAMOTRIGINE [Concomitant]
     Indication: PRODUCT USED FOR UNKNOWN INDICATION
     Dates: start: 20120307
  3. VALPROATE SODIUM [Suspect]
     Indication: EPILEPSY
     Route: 048
     Dates: start: 20100801

REACTIONS (6)
  - IRRITABILITY [None]
  - DISORIENTATION [None]
  - DRUG INEFFECTIVE [None]
  - MEMORY IMPAIRMENT [None]
  - CONFUSIONAL STATE [None]
  - AGGRESSION [None]
